FAERS Safety Report 6071949-1 (Version None)
Quarter: 2009Q1

REPORT INFORMATION
  Report Type: 
  Country: None (occurrence: None)
  Receive Date: 20090204
  Receipt Date: 20090204
  Transmission Date: 20090719
  Serious: Yes (Life-Threatening, Hospitalization)
  Sender: FDA-Public Use
  Company Number: None

PATIENT
  Sex: Female
  Weight: 42 kg

DRUGS (5)
  1. LAMICTAL [Suspect]
     Indication: CONVULSION
     Dosage: 25 MG PO
     Route: 048
     Dates: start: 20090101, end: 20090127
  2. PREDNISOLONE [Concomitant]
  3. FAMOTIDINE [Concomitant]
  4. FOLIC ACID [Concomitant]
  5. DEPAKENE [Concomitant]

REACTIONS (5)
  - CONJUNCTIVAL DISORDER [None]
  - INFECTION [None]
  - KERATITIS [None]
  - STEVENS-JOHNSON SYNDROME [None]
  - WOUND [None]
